FAERS Safety Report 4623669-5 (Version None)
Quarter: 2005Q1

REPORT INFORMATION
  Report Type: 
  Country: None (occurrence: None)
  Receive Date: 20050331
  Receipt Date: 20050319
  Transmission Date: 20050727
  Serious: Yes (Hospitalization, Other)
  Sender: FDA-Public Use
  Company Number: JP-JNJFOC-20040904707

PATIENT
  Sex: Female
  Weight: 54.4 kg

DRUGS (24)
  1. REMICADE [Suspect]
     Route: 042
  2. REMICADE [Suspect]
     Route: 042
  3. REMICADE [Suspect]
     Route: 042
  4. REMICADE [Suspect]
     Route: 042
  5. REMICADE [Suspect]
     Indication: RHEUMATOID ARTHRITIS
     Route: 042
  6. METHOTREXATE [Suspect]
  7. METHOTREXATE [Suspect]
     Indication: RHEUMATOID ARTHRITIS
  8. PREDONINE [Suspect]
     Route: 049
  9. PREDONINE [Suspect]
     Route: 049
  10. PREDONINE [Suspect]
     Route: 049
  11. PREDONINE [Suspect]
     Route: 049
  12. PREDONINE [Suspect]
     Route: 049
  13. PREDONINE [Suspect]
     Route: 049
  14. PREDONINE [Suspect]
     Route: 049
  15. PREDONINE [Suspect]
     Route: 049
  16. PREDONINE [Suspect]
     Indication: RHEUMATOID ARTHRITIS
     Route: 049
  17. SOLU-MEDROL [Suspect]
  18. SOLU-MEDROL [Suspect]
  19. AZULFIDINE [Concomitant]
     Indication: RHEUMATOID ARTHRITIS
     Route: 049
  20. FOLIAMIN [Concomitant]
     Route: 049
  21. TAKEPRON [Concomitant]
     Indication: PROPHYLAXIS
     Route: 049
  22. GLAKAY [Concomitant]
     Route: 049
  23. DEPAS [Concomitant]
     Route: 049
  24. ACTONEL [Concomitant]
     Indication: OSTEOPOROSIS PROPHYLAXIS
     Route: 049

REACTIONS (9)
  - ALANINE AMINOTRANSFERASE INCREASED [None]
  - ASPARTATE AMINOTRANSFERASE INCREASED [None]
  - BLOOD ALKALINE PHOSPHATASE INCREASED [None]
  - BLOOD CALCIUM DECREASED [None]
  - BLOOD LACTATE DEHYDROGENASE INCREASED [None]
  - DISSEMINATED TUBERCULOSIS [None]
  - HISTIOCYTOSIS HAEMATOPHAGIC [None]
  - PANCYTOPENIA [None]
  - PROTEIN TOTAL DECREASED [None]
